FAERS Safety Report 19156181 (Version 2)
Quarter: 2021Q2

REPORT INFORMATION
  Report Type: Spontaneous
  Country: JP (occurrence: JP)
  Receive Date: 20210420
  Receipt Date: 20210510
  Transmission Date: 20210717
  Serious: Yes (Other)
  Sender: FDA-Public Use
  Company Number: JP-SUN PHARMACEUTICAL INDUSTRIES LTD-2021RR-291894

PATIENT
  Age: 54 Year
  Sex: Male

DRUGS (4)
  1. AMARYL [Suspect]
     Active Substance: GLIMEPIRIDE
     Indication: BLOOD GLUCOSE ABNORMAL
     Dosage: 1 MILLIGRAM, UNK
  2. METFORMIN HYDROCHLORIDE TAB.250MG MT TE [Suspect]
     Active Substance: METFORMIN HYDROCHLORIDE
     Indication: BLOOD GLUCOSE ABNORMAL
     Dosage: 1000 MILLIGRAM, UNK
     Route: 065
  3. GLACTIV [Suspect]
     Active Substance: SITAGLIPTIN
     Indication: BLOOD GLUCOSE ABNORMAL
     Dosage: 50 MILLIGRAM, UNK
     Route: 065
  4. IPRAGLIFLOZIN [Suspect]
     Active Substance: IPRAGLIFLOZIN
     Indication: BLOOD GLUCOSE ABNORMAL
     Dosage: 50 MILLIGRAM, UNK
     Route: 065

REACTIONS (1)
  - Hypoglycaemia [Unknown]
